FAERS Safety Report 8103552-3 (Version None)
Quarter: 2012Q1

REPORT INFORMATION
  Report Type: 
  Country: None (occurrence: None)
  Receive Date: 20120201
  Receipt Date: 20120125
  Transmission Date: 20120608
  Serious: Yes (Hospitalization, Other)
  Sender: FDA-Public Use
  Company Number: US-PFIZER INC-2010091171

PATIENT
  Sex: Female

DRUGS (3)
  1. SUTENT [Suspect]
     Dosage: 37.5 MG, 1X/DAY, 4/2 SCHEDULE
     Route: 048
  2. SUTENT [Suspect]
     Indication: METASTATIC RENAL CELL CARCINOMA
     Dosage: 50 MG, 1X/DAY, X 28 DAYS Q 42 DAYS
     Route: 048
     Dates: start: 20100601
  3. AMOXICILLIN [Concomitant]
     Dosage: UNK

REACTIONS (19)
  - ASTHENIA [None]
  - ANAEMIA [None]
  - VOMITING [None]
  - DECREASED APPETITE [None]
  - DYSPEPSIA [None]
  - NAUSEA [None]
  - SKIN IRRITATION [None]
  - BRONCHITIS [None]
  - CHOLECYSTITIS [None]
  - BLOOD SODIUM DECREASED [None]
  - DYSGEUSIA [None]
  - DIZZINESS [None]
  - DIARRHOEA [None]
  - GASTRIC DISORDER [None]
  - LIVER FUNCTION TEST ABNORMAL [None]
  - PLATELET COUNT DECREASED [None]
  - WEIGHT INCREASED [None]
  - YELLOW SKIN [None]
  - PANCREATITIS [None]
